FAERS Safety Report 7623663-6 (Version None)
Quarter: 2011Q3

REPORT INFORMATION
  Report Type: 
  Country: None (occurrence: None)
  Receive Date: 20110720
  Receipt Date: 20110711
  Transmission Date: 20111222
  Serious: Yes (Life-Threatening)
  Sender: FDA-Public Use
  Company Number: FR-SANOFI-AVENTIS-2011SA036420

PATIENT
  Age: 87 Year
  Sex: Male

DRUGS (9)
  1. LASIX [Concomitant]
     Route: 065
  2. PERINDOPRIL ERBUMINE [Concomitant]
     Route: 065
  3. PRAZOSIN HCL [Concomitant]
     Route: 065
  4. AMLODIPINE BESYLATE [Concomitant]
     Route: 065
  5. PLAVIX [Suspect]
     Indication: ATRIAL FIBRILLATION
     Route: 048
     Dates: start: 20110324, end: 20110504
  6. PREVISCAN [Interacting]
     Indication: ATRIAL FIBRILLATION
     Route: 048
     Dates: start: 20110501
  7. PREVISCAN [Interacting]
     Route: 048
     Dates: start: 20110324, end: 20110504
  8. ATORVASTATIN CALCIUM [Concomitant]
     Route: 065
  9. PLAVIX [Interacting]
     Route: 048
     Dates: start: 20110501

REACTIONS (5)
  - MELAENA [None]
  - ANAEMIA [None]
  - INTERNATIONAL NORMALISED RATIO INCREASED [None]
  - DRUG INTERACTION [None]
  - SHOCK HAEMORRHAGIC [None]
